FAERS Safety Report 7553069-X (Version None)
Quarter: 2011Q2

REPORT INFORMATION
  Report Type: 
  Country: None (occurrence: None)
  Receive Date: 20110616
  Receipt Date: 20110614
  Transmission Date: 20111010
  Serious: Yes (Disabling)
  Sender: FDA-Public Use
  Company Number: DE-MERCK-1105DEU00111

PATIENT
  Age: 80 Year
  Sex: Male
  Weight: 83 kg

DRUGS (10)
  1. VYTORIN [Suspect]
     Indication: ARTERIOSCLEROSIS CORONARY ARTERY
     Route: 048
     Dates: start: 20100101, end: 20110501
  2. CANDESARTAN CILEXETIL [Concomitant]
     Route: 048
  3. RAMIPRIL [Concomitant]
     Route: 048
  4. TAMSULOSIN HYDROCHLORIDE [Concomitant]
     Indication: BENIGN PROSTATIC HYPERPLASIA
     Route: 065
  5. VYTORIN [Suspect]
     Indication: HYPERLIPIDAEMIA
     Route: 048
     Dates: start: 20100101, end: 20110501
  6. EZETIMIBE [Suspect]
     Indication: ARTERIOSCLEROSIS CORONARY ARTERY
     Route: 048
     Dates: start: 20100101, end: 20110501
  7. ASPIRIN [Concomitant]
     Route: 048
  8. EZETIMIBE [Suspect]
     Indication: HYPERLIPIDAEMIA
     Route: 048
     Dates: start: 20100101, end: 20110501
  9. BISOPROLOL [Concomitant]
     Indication: HYPERTENSION
     Route: 048
  10. DUTASTERIDE [Concomitant]
     Indication: BENIGN PROSTATIC HYPERPLASIA
     Route: 048

REACTIONS (5)
  - BLOOD CREATINE PHOSPHOKINASE INCREASED [None]
  - MUSCULAR WEAKNESS [None]
  - MICTURITION DISORDER [None]
  - SENSORY DISTURBANCE [None]
  - GASTROINTESTINAL DISORDER [None]
